FAERS Safety Report 10523548 (Version 1)
Quarter: 2014Q4

REPORT INFORMATION
  Report Type: Spontaneous
  Country: US (occurrence: US)
  Receive Date: 20141017
  Receipt Date: 20141017
  Transmission Date: 20150528
  Serious: Yes (Hospitalization, Other)
  Sender: FDA-Public Use
  Company Number: US-AMGEN-USASP2014077211

PATIENT
  Age: 67 Year
  Sex: Female

DRUGS (7)
  1. PREDNISONE. [Concomitant]
     Active Substance: PREDNISONE
     Dosage: UNK
  2. NAPROXEN. [Concomitant]
     Active Substance: NAPROXEN
     Dosage: UNK
  3. CITALOPRAM [Concomitant]
     Active Substance: CITALOPRAM HYDROBROMIDE
     Dosage: UNK
  4. ENBREL [Suspect]
     Active Substance: ETANERCEPT
     Indication: PSORIATIC ARTHROPATHY
     Dosage: 50 MG, QWK
     Route: 058
     Dates: start: 20090501, end: 20140922
  5. SULFASALAZINE. [Concomitant]
     Active Substance: SULFASALAZINE
     Dosage: UNK
  6. DIOVAN [Concomitant]
     Active Substance: VALSARTAN
     Dosage: UNK
  7. SYNTHROID [Concomitant]
     Active Substance: LEVOTHYROXINE SODIUM
     Dosage: UNK

REACTIONS (13)
  - Abdominal pain upper [Not Recovered/Not Resolved]
  - Secretion discharge [Not Recovered/Not Resolved]
  - Staphylococcal infection [Unknown]
  - Wound [Recovered/Resolved]
  - Dizziness [Recovered/Resolved]
  - Balance disorder [Recovered/Resolved]
  - Blood pressure abnormal [Unknown]
  - Asthenia [Recovered/Resolved]
  - Bacteraemia [Unknown]
  - Cellulitis [Not Recovered/Not Resolved]
  - Arthropod bite [Recovered/Resolved]
  - Scratch [Recovered/Resolved]
  - Abscess [Unknown]

NARRATIVE: CASE EVENT DATE: 201409
